FAERS Safety Report 9715018 (Version 1)
Quarter: 2013Q4

REPORT INFORMATION
  Report Type: Spontaneous
  Country: US (occurrence: US)
  Receive Date: 20131126
  Receipt Date: 20131126
  Transmission Date: 20140711
  Serious: No
  Sender: FDA-Public Use
  Company Number: US-NOVEN-13US007766

PATIENT
  Age: 71 Year
  Sex: Female

DRUGS (2)
  1. MINIVELLE [Suspect]
     Indication: PRODUCT USED FOR UNKNOWN INDICATION
     Dosage: 0.075 MG/DAY, UNK
     Route: 062
     Dates: start: 201308, end: 20130910
  2. MINIVELLE [Suspect]
     Dosage: 0.1 MG/DAY, UNK
     Route: 062
     Dates: start: 20130910, end: 20130919

REACTIONS (2)
  - Alopecia [Unknown]
  - Application site irritation [Unknown]
